FAERS Safety Report 15779066 (Version 3)
Quarter: 2019Q2

REPORT INFORMATION
  Report Type: Report from Study
  Country: PE (occurrence: PE)
  Receive Date: 20190101
  Receipt Date: 20190403
  Transmission Date: 20190711
  Serious: Yes (Hospitalization)
  Sender: FDA-Public Use
  Company Number: PHHY2018PE197176

PATIENT
  Age: 51 Year
  Sex: Male
  Weight: 72 kg

DRUGS (2)
  1. TASIGNA [Suspect]
     Active Substance: NILOTINIB
     Indication: CHRONIC MYELOID LEUKAEMIA
     Dosage: 800 MG, QD
     Route: 048
  2. TASIGNA [Suspect]
     Active Substance: NILOTINIB
     Dosage: 800 MG, BID (400 MG IN THE MORNING AND 400 MG AT THE NIGHT)
     Route: 048
     Dates: start: 20180625

REACTIONS (7)
  - White blood cell count decreased [Unknown]
  - Inappropriate schedule of product administration [Unknown]
  - Ulcer [Recovering/Resolving]
  - Discomfort [Unknown]
  - Infection [Recovering/Resolving]
  - Haemoglobin decreased [Recovering/Resolving]
  - Pyrexia [Recovering/Resolving]

NARRATIVE: CASE EVENT DATE: 20181018
